FAERS Safety Report 8729946 (Version 3)
Quarter: 2012Q4

REPORT INFORMATION
  Report Type: Report from Study
  Country: US (occurrence: US)
  Receive Date: 20120817
  Receipt Date: 20120924
  Transmission Date: 20130627
  Serious: Yes (Life-Threatening, Hospitalization, Other)
  Sender: FDA-Public Use
  Company Number: US-BRISTOL-MYERS SQUIBB COMPANY-16860116

PATIENT
  Age: 77 Year
  Sex: Male

DRUGS (18)
  1. SAXAGLIPTIN [Suspect]
     Indication: TYPE 2 DIABETES MELLITUS
     Dates: start: 20100608
  2. BLINDED: PLACEBO [Suspect]
     Indication: TYPE 2 DIABETES MELLITUS
     Dates: start: 20100608
  3. GLUCOTROL XL [Suspect]
     Indication: TYPE 2 DIABETES MELLITUS
     Dosage: Before randomization-15Nov2010(20mg)
16Nov2010-27Jun2011(30mg)
28Jun2011-contn(20mg)
  4. LANTUS [Suspect]
     Indication: TYPE 2 DIABETES MELLITUS
     Dosage: Before randomization-15Aug2010(30IU)
16Aug2010-01Nov2011(25IU/Units)
02Nov2011-conting(30IU/Units)
  5. HUMALOG [Suspect]
     Indication: TYPE 2 DIABETES MELLITUS
     Dosage: Humalog short acting insulin
Before randomization-23Jan2012(8IU)
24Jan2012-conting(6units)
  6. PLAVIX [Concomitant]
     Dosage: 75 mg on 17-Apr-2012;
     Dates: start: 20120408
  7. PRAVASTATIN SODIUM [Concomitant]
     Dosage: 08Apr2012-08Apr2012(40mg)
09Apr2012-conting(80mg)
     Dates: start: 20120408
  8. ASPIRIN [Concomitant]
     Dates: start: 20110319
  9. TRIAMCINOLONE [Concomitant]
     Dosage: Triamcinolone creatm 1%
     Dates: start: 20120123
  10. CARVEDILOL [Concomitant]
     Dates: start: 20120409
  11. LASIX [Concomitant]
     Dates: start: 20120408, end: 20120408
  12. SODIUM CHLORIDE [Concomitant]
     Dates: start: 20120408, end: 20120410
  13. HEPARIN [Concomitant]
     Dates: start: 20120408, end: 20120408
  14. MORPHINE [Concomitant]
     Dates: start: 20120408, end: 20120408
  15. NITROBID OINTMENT [Concomitant]
     Dates: start: 20120408, end: 20120408
  16. INTEGRILIN [Concomitant]
     Dates: start: 20120408, end: 20120408
  17. CALCIUM ANTAGONIST [Concomitant]
     Dosage: Dihydropyridines
     Dates: start: 20120221
  18. IMDUR [Concomitant]
     Dates: start: 20120412

REACTIONS (3)
  - Hypoglycaemia [Recovered/Resolved]
  - Hypertension [Recovered/Resolved]
  - Renal failure acute [Recovered/Resolved]
